FAERS Safety Report 4373958-7 (Version None)
Quarter: 2004Q1

REPORT INFORMATION
  Report Type: 
  Country: None (occurrence: None)
  Receive Date: 20040305
  Receipt Date: 20040127
  Transmission Date: 20041129
  Serious: Yes (Other)
  Sender: FDA-Public Use
  Company Number: 2003UW16073

PATIENT
  Age: 72 Year
  Sex: Male
  Weight: 87.5442 kg

DRUGS (6)
  1. CRESTOR [Suspect]
     Indication: BLOOD CHOLESTEROL INCREASED
     Dosage: 10 MG PO
     Route: 048
  2. TOPROL-XL [Concomitant]
  3. ASPIRIN [Concomitant]
  4. PAXIL [Concomitant]
  5. ZEPIA [Concomitant]
  6. CELEXA [Concomitant]

REACTIONS (1)
  - GASTROENTERITIS [None]
